FAERS Safety Report 20758512 (Version 1)
Quarter: 2022Q2

REPORT INFORMATION
  Report Type: Spontaneous
  Country: US (occurrence: US)
  Receive Date: 20220427
  Receipt Date: 20220427
  Transmission Date: 20220721
  Serious: Yes (Other)
  Sender: FDA-Public Use
  Company Number: US-BAUSCH-BL-2022-009843

PATIENT
  Sex: Male
  Weight: 68.100 kg

DRUGS (2)
  1. APRISO [Suspect]
     Active Substance: MESALAMINE
     Indication: Colitis ulcerative
     Dosage: ABOUT 10 YEARS AGO
     Route: 048
     Dates: start: 2012
  2. MESALAMINE EXTENDED-RELEASE [Suspect]
     Active Substance: MESALAMINE
     Indication: Colitis ulcerative
     Dosage: ER TABLET
     Route: 065

REACTIONS (2)
  - Rectal haemorrhage [Recovered/Resolved]
  - Abnormal faeces [Unknown]

NARRATIVE: CASE EVENT DATE: 20210701
